FAERS Safety Report 5343468-9 (Version None)
Quarter: 2007Q2

REPORT INFORMATION
  Report Type: 
  Country: None (occurrence: None)
  Receive Date: 20070604
  Receipt Date: 20070522
  Transmission Date: 20071010
  Serious: Yes (Hospitalization, Other)
  Sender: FDA-Public Use
  Company Number: PHNR2007AU01110

PATIENT
  Age: 57 Year
  Sex: Male

DRUGS (6)
  1. PANADOL [Concomitant]
  2. FELDENE [Concomitant]
  3. DOTHEP [Concomitant]
  4. PARIET [Concomitant]
  5. TEMAZEPAM [Concomitant]
  6. CGP 57148B [Suspect]
     Indication: CHRONIC MYELOID LEUKAEMIA
     Dosage: 600MG DAILY
     Route: 048
     Dates: start: 20031101, end: 20070515

REACTIONS (2)
  - MYALGIA [None]
  - RHABDOMYOLYSIS [None]
